FAERS Safety Report 4973664-1 (Version None)
Quarter: 2006Q2

REPORT INFORMATION
  Report Type: 
  Country: None (occurrence: None)
  Receive Date: 20060414
  Receipt Date: 20060120
  Transmission Date: 20061013
  Serious: Yes (Death, Hospitalization)
  Sender: FDA-Public Use
  Company Number: US-MERCK-0601USA02614

PATIENT
  Age: 49 Year
  Sex: Female

DRUGS (15)
  1. VIOXX [Suspect]
     Route: 048
     Dates: start: 20010101
  2. PROFER [Concomitant]
     Route: 065
  3. WARFARIN [Concomitant]
     Route: 065
  4. FUROSEMIDE [Concomitant]
     Route: 065
  5. LISINOPRIL [Concomitant]
     Route: 065
  6. WELLBUTRIN SR [Concomitant]
     Route: 065
  7. SINGULAIR [Concomitant]
     Route: 065
  8. PENICILLIN VK [Concomitant]
     Route: 065
  9. DETROL LA [Concomitant]
     Route: 065
  10. ASPIRIN [Concomitant]
     Route: 065
  11. COREG [Concomitant]
     Route: 065
  12. LANOXIN [Concomitant]
     Route: 065
  13. PAXIL [Concomitant]
     Route: 065
  14. SPIRONOLACTONE [Concomitant]
     Route: 065
  15. PREVACID [Concomitant]
     Route: 065

REACTIONS (8)
  - ABDOMINAL DISTENSION [None]
  - ADVERSE EVENT [None]
  - ASTHMA [None]
  - CARDIAC ARREST [None]
  - CARDIAC FAILURE CONGESTIVE [None]
  - LOSS OF CONSCIOUSNESS [None]
  - MYOCARDIAL INFARCTION [None]
  - RESPIRATORY ARREST [None]
